FAERS Safety Report 8305248-1 (Version None)
Quarter: 2012Q2

REPORT INFORMATION
  Report Type: 
  Country: None (occurrence: None)
  Receive Date: 20120423
  Receipt Date: 20120413
  Transmission Date: 20120825
  Serious: Yes (Other)
  Sender: FDA-Public Use
  Company Number: CN-ASTRAZENECA-2012SE21216

PATIENT
  Age: 47 Year
  Sex: Female

DRUGS (6)
  1. METOPROLOL SUCCINATE [Concomitant]
  2. CLOPIDOGREL [Concomitant]
  3. ACARBOSE [Concomitant]
  4. ACEI (PERINDOPRIL) [Concomitant]
  5. CRESTOR [Suspect]
     Indication: DYSLIPIDAEMIA
     Route: 048
     Dates: start: 20111015
  6. ASPIRIN [Concomitant]

REACTIONS (3)
  - BLOOD CREATINE PHOSPHOKINASE INCREASED [None]
  - MUSCULOSKELETAL PAIN [None]
  - BLOOD LACTATE DEHYDROGENASE INCREASED [None]
